FAERS Safety Report 8163515-9 (Version None)
Quarter: 2012Q1

REPORT INFORMATION
  Report Type: 
  Country: None (occurrence: None)
  Receive Date: 20120224
  Receipt Date: 20120221
  Transmission Date: 20120608
  Serious: Yes (Life-Threatening, Hospitalization, Other)
  Sender: FDA-Public Use
  Company Number: US-BAYER-2011-109683

PATIENT
  Age: 41 Year
  Sex: Female
  Weight: 54.422 kg

DRUGS (11)
  1. YAZ [Suspect]
  2. TRETINOIN [Concomitant]
     Dosage: 0.1 %, BID
  3. AMBIEN [Concomitant]
     Indication: INSOMNIA
     Dosage: 10 MG, PRN
  4. DROSPIRENONE AND ETHINYL ESTRADIOL [Suspect]
  5. CELEXA [Concomitant]
     Dosage: 20 MG, UNK
  6. CELEXA [Concomitant]
     Dosage: 40 MG, QD
  7. LEVOXYL [Concomitant]
     Dosage: 150 ?G, UNK
  8. LORAZEPAM [Concomitant]
     Indication: INSOMNIA
     Dosage: 1 MG, PRN
  9. BUPROPION HCL [Concomitant]
     Dosage: 75 MG, TID
  10. ACYCLOVIR [Concomitant]
     Dosage: 400 MG, TID
  11. YASMIN [Suspect]

REACTIONS (7)
  - PAIN [None]
  - VISUAL IMPAIRMENT [None]
  - GENERAL PHYSICAL HEALTH DETERIORATION [None]
  - PULMONARY EMBOLISM [None]
  - INJURY [None]
  - ANHEDONIA [None]
  - ANXIETY [None]
